FAERS Safety Report 8837801 (Version 1)
Quarter: 2012Q4

REPORT INFORMATION
  Report Type: 
  Country: US (occurrence: US)
  Receive Date: 20121012
  Receipt Date: 20121012
  Transmission Date: 20130627
  Serious: Yes (Other)
  Sender: FDA-Public Use
  Company Number: US-GLAXOSMITHKLINE-A0987690A

PATIENT
  Age: 82 Year
  Sex: Male
  Weight: 106.8 kg

DRUGS (6)
  1. JALYN [Suspect]
     Indication: BENIGN PROSTATIC HYPERPLASIA
     Route: 048
     Dates: start: 20110606, end: 20120729
  2. ASPIRIN [Concomitant]
  3. BENICAR [Concomitant]
  4. LOVAZA [Concomitant]
  5. NABUMETONE [Concomitant]
  6. SYNTHROID [Concomitant]

REACTIONS (2)
  - Breast cancer male [Not Recovered/Not Resolved]
  - Invasive ductal breast carcinoma [Not Recovered/Not Resolved]
